FAERS Safety Report 13273129 (Version 2)
Quarter: 2017Q1

REPORT INFORMATION
  Report Type: Report from Study
  Country: KR (occurrence: KR)
  Receive Date: 20170227
  Receipt Date: 20170310
  Transmission Date: 20170428
  Serious: Yes (Death)
  Sender: FDA-Public Use
  Company Number: KR-KOWA-17JP000363AA

PATIENT
  Age: 93 Year
  Sex: Female

DRUGS (5)
  1. CLOPIDOGREL [Concomitant]
     Active Substance: CLOPIDOGREL BISULFATE
     Indication: CEREBROVASCULAR DISORDER
     Dosage: UNK, UNK
     Route: 065
     Dates: start: 20160718
  2. DONEPEZIL. [Concomitant]
     Active Substance: DONEPEZIL
     Indication: DEMENTIA
     Dosage: UNK, UNK
     Route: 065
     Dates: start: 20160718
  3. TELMINUVO [Concomitant]
     Indication: HYPERTENSION
     Dosage: UNK, UNK
     Route: 048
     Dates: start: 20160718
  4. ACETYLCARNITINE HYDROCHLORIDE [Concomitant]
     Active Substance: ACETYLCARNITINE HYDROCHLORIDE
     Indication: CEREBROVASCULAR DISORDER
     Dosage: UNK, UNK
     Route: 065
     Dates: start: 20160718
  5. PITAVASTATIN [Suspect]
     Active Substance: PITAVASTATIN
     Indication: DYSLIPIDAEMIA
     Dosage: 4 MG, QD
     Route: 048
     Dates: start: 20160718

REACTIONS (1)
  - Bile duct cancer [Fatal]
